FAERS Safety Report 9482157 (Version 2)
Quarter: 2013Q3

REPORT INFORMATION
  Report Type: Spontaneous
  Country: US (occurrence: US)
  Receive Date: 20130828
  Receipt Date: 20130924
  Transmission Date: 20140515
  Serious: Yes (Other)
  Sender: FDA-Public Use
  Company Number: US-US-EMD SERONO, INC.-7232878

PATIENT
  Age: 42 Year
  Sex: Male
  Weight: 113 kg

DRUGS (2)
  1. EGRIFTA [Suspect]
     Indication: LIPODYSTROPHY ACQUIRED
     Route: 058
     Dates: start: 20130321
  2. EGRIFTA [Suspect]
     Route: 030
     Dates: start: 20130325, end: 20130625

REACTIONS (1)
  - Hyperglycaemia [Recovered/Resolved]
